FAERS Safety Report 5863873-1 (Version None)
Quarter: 2008Q3

REPORT INFORMATION
  Report Type: 
  Country: None (occurrence: None)
  Receive Date: 20080827
  Receipt Date: 20080819
  Transmission Date: 20090109
  Serious: Yes (Death)
  Sender: FDA-Public Use
  Company Number: GXKR2008GB07870

PATIENT
  Age: 58 Year
  Sex: Female
  Weight: 70 kg

DRUGS (4)
  1. CODEINE PHOSPHATE (NGX) (CODEINE PHOSPHATE) UNKNOWN [Suspect]
     Indication: DIARRHOEA
     Dosage: 60 MG, BID, ORAL
     Route: 048
     Dates: start: 20071029, end: 20071030
  2. OLANZAPINE [Suspect]
     Indication: BIPOLAR DISORDER
     Dosage: 15 MG, QD, ORAL
     Route: 048
  3. LEVOTHYROXINE SODIUM [Concomitant]
  4. VALPROIC ACID [Concomitant]

REACTIONS (2)
  - RESPIRATORY DEPRESSION [None]
  - SEDATION [None]
